FAERS Safety Report 8727036 (Version 2)
Quarter: 2015Q3

REPORT INFORMATION
  Report Type: Report from Study
  Country: US (occurrence: US)
  Receive Date: 20120816
  Receipt Date: 20150702
  Transmission Date: 20151125
  Serious: Yes (Death)
  Sender: FDA-Public Use
  Company Number: US-ROCHE-1100685

PATIENT
  Age: 47 Year
  Sex: Male

DRUGS (18)
  1. ACTIVASE [Suspect]
     Active Substance: ALTEPLASE
     Indication: CARDIOGENIC SHOCK
     Route: 042
  2. DOPAMINE [Concomitant]
     Active Substance: DOPAMINE\DOPAMINE HYDROCHLORIDE
     Route: 065
  3. TYLENOL [Concomitant]
     Active Substance: ACETAMINOPHEN
     Dosage: PRN FOR MILD NON CARDIAC PAIN
     Route: 065
  4. REGLAN [Concomitant]
     Active Substance: METOCLOPRAMIDE HYDROCHLORIDE
     Route: 065
  5. NITRO-BID [Concomitant]
     Active Substance: NITROGLYCERIN
     Route: 048
  6. CARDIZEM [Concomitant]
     Active Substance: DILTIAZEM HYDROCHLORIDE
     Route: 048
  7. PHENERGAN [Concomitant]
     Active Substance: PROMETHAZINE HYDROCHLORIDE
     Route: 065
  8. NORMAL SALINE [Concomitant]
     Active Substance: SODIUM CHLORIDE
     Dosage: 1000 CC
     Route: 065
  9. PHENERGAN [Concomitant]
     Active Substance: PROMETHAZINE HYDROCHLORIDE
     Route: 065
  10. ACTIVASE [Suspect]
     Active Substance: ALTEPLASE
     Indication: MYOCARDIAL INFARCTION
     Dosage: 15 MG OVER 3 MINUTES, 50 MG OVER 30 MINUTES AND 35 MG OVER 1 HOUR
     Route: 042
  11. ACTIVASE [Suspect]
     Active Substance: ALTEPLASE
     Route: 042
  12. ACTIVASE [Suspect]
     Active Substance: ALTEPLASE
     Route: 042
  13. NITROGLYCERIN. [Concomitant]
     Active Substance: NITROGLYCERIN
  14. COLACE [Concomitant]
     Active Substance: DOCUSATE SODIUM
     Route: 048
  15. TRIDIL [Concomitant]
     Active Substance: NITROGLYCERIN
     Route: 065
  16. HEPARIN [Concomitant]
     Active Substance: HEPARIN SODIUM
     Dosage: 20000 UNITS
     Route: 065
  17. ACETYLSALICYLIC ACID [Concomitant]
     Active Substance: ASPIRIN
     Route: 048
  18. MORPHINE SULFATE. [Concomitant]
     Active Substance: MORPHINE SULFATE
     Route: 065

REACTIONS (1)
  - Death [Fatal]

NARRATIVE: CASE EVENT DATE: 19910828
